FAERS Safety Report 25400321 (Version 1)
Quarter: 2025Q2

REPORT INFORMATION
  Report Type: Spontaneous
  Country: SK (occurrence: SK)
  Receive Date: 20250605
  Receipt Date: 20250605
  Transmission Date: 20250717
  Serious: Yes (Other)
  Sender: AMGEN
  Company Number: SK-AMGEN-SVKSP2025107076

PATIENT
  Age: 63 Year
  Sex: Male

DRUGS (34)
  1. FILGRASTIM [Suspect]
     Active Substance: FILGRASTIM
     Indication: Product used for unknown indication
     Dosage: 48 KILO-INTERNATIONAL UNIT, QD, 7 DAYS
     Route: 058
     Dates: start: 20250201, end: 20250207
  2. FILGRASTIM [Suspect]
     Active Substance: FILGRASTIM
     Dosage: 48 KILO-INTERNATIONAL UNIT, QD, 7 DAYS
     Route: 065
     Dates: start: 20241009
  3. FILGRASTIM [Suspect]
     Active Substance: FILGRASTIM
     Dosage: 48 KILO-INTERNATIONAL UNIT, QD, 7 DAYS
     Route: 065
     Dates: start: 20241010
  4. FILGRASTIM [Suspect]
     Active Substance: FILGRASTIM
     Dosage: 48 KILO-INTERNATIONAL UNIT, QD, 7 DAYS
     Route: 065
     Dates: start: 20241014
  5. FILGRASTIM [Suspect]
     Active Substance: FILGRASTIM
     Dosage: 48 KILO-INTERNATIONAL UNIT, QD, 7 DAYS
     Route: 065
     Dates: start: 20241015
  6. FILGRASTIM [Suspect]
     Active Substance: FILGRASTIM
     Dosage: 48 KILO-INTERNATIONAL UNIT, QD, 7 DAYS
     Route: 065
     Dates: start: 20241023
  7. FILGRASTIM [Suspect]
     Active Substance: FILGRASTIM
     Dosage: 48 KILO-INTERNATIONAL UNIT, QD, 7 DAYS
     Route: 065
     Dates: start: 20241031
  8. FILGRASTIM [Suspect]
     Active Substance: FILGRASTIM
     Dosage: 48 KILO-INTERNATIONAL UNIT, QD, 7 DAYS
     Route: 065
     Dates: start: 20241223
  9. FILGRASTIM [Suspect]
     Active Substance: FILGRASTIM
     Dosage: 48 KILO-INTERNATIONAL UNIT, QD, 7 DAYS
     Route: 065
     Dates: start: 20241225
  10. FILGRASTIM [Suspect]
     Active Substance: FILGRASTIM
     Dosage: 48 KILO-INTERNATIONAL UNIT, QD, 7 DAYS
     Route: 065
     Dates: start: 20241227
  11. FILGRASTIM [Suspect]
     Active Substance: FILGRASTIM
     Dosage: 48 KILO-INTERNATIONAL UNIT, QD, 7 DAYS
     Route: 065
     Dates: start: 20250104
  12. FILGRASTIM [Suspect]
     Active Substance: FILGRASTIM
     Dosage: 48 KILO-INTERNATIONAL UNIT, QD, 7 DAYS
     Route: 065
     Dates: start: 20250106
  13. FILGRASTIM [Suspect]
     Active Substance: FILGRASTIM
     Dosage: 48 KILO-INTERNATIONAL UNIT, QD, 7 DAYS
     Route: 065
     Dates: start: 20250109
  14. FILGRASTIM [Suspect]
     Active Substance: FILGRASTIM
     Dosage: 48 KILO-INTERNATIONAL UNIT, QD, 7 DAYS
     Route: 065
     Dates: start: 20250113
  15. FILGRASTIM [Suspect]
     Active Substance: FILGRASTIM
     Dosage: 48 KILO-INTERNATIONAL UNIT, QD, 7 DAYS
     Route: 065
     Dates: start: 20250114
  16. FILGRASTIM [Suspect]
     Active Substance: FILGRASTIM
     Dosage: 48 KILO-INTERNATIONAL UNIT, QD, 7 DAYS
     Route: 065
     Dates: start: 20250115
  17. FILGRASTIM [Suspect]
     Active Substance: FILGRASTIM
     Dosage: 48 KILO-INTERNATIONAL UNIT, QD, 7 DAYS
     Route: 065
     Dates: start: 20250120
  18. FILGRASTIM [Suspect]
     Active Substance: FILGRASTIM
     Dosage: 48 KILO-INTERNATIONAL UNIT, QD, 7 DAYS
     Route: 065
     Dates: start: 20250122
  19. FILGRASTIM [Suspect]
     Active Substance: FILGRASTIM
     Dosage: 48 KILO-INTERNATIONAL UNIT, QD, 7 DAYS
     Route: 065
     Dates: start: 20250124
  20. FILGRASTIM [Suspect]
     Active Substance: FILGRASTIM
     Dosage: 48 KILO-INTERNATIONAL UNIT, QD, 7 DAYS
     Route: 065
     Dates: start: 20250126
  21. FILGRASTIM [Suspect]
     Active Substance: FILGRASTIM
     Dosage: 48 KILO-INTERNATIONAL UNIT, QD, 7 DAYS
     Route: 065
     Dates: start: 20250215
  22. ERYTHROPOIETIN [Suspect]
     Active Substance: ERYTHROPOIETIN
     Indication: Product used for unknown indication
     Route: 065
  23. ADRIACIN [Suspect]
     Active Substance: DOXORUBICIN HYDROCHLORIDE
     Indication: Product used for unknown indication
     Route: 065
  24. DACARBAZINE [Suspect]
     Active Substance: DACARBAZINE
     Indication: Product used for unknown indication
     Route: 065
  25. PIPERACILLIN SODIUM\TAZOBACTAM SODIUM [Suspect]
     Active Substance: PIPERACILLIN SODIUM\TAZOBACTAM SODIUM
     Indication: Product used for unknown indication
     Route: 065
  26. CLOPIDOGREL [Suspect]
     Active Substance: CLOPIDOGREL BISULFATE
     Indication: Product used for unknown indication
     Route: 065
  27. DIOSMIN\HESPERIDIN [Suspect]
     Active Substance: DIOSMIN\HESPERIDIN
     Indication: Product used for unknown indication
     Route: 065
  28. TOLPERISONE HYDROCHLORIDE [Suspect]
     Active Substance: TOLPERISONE HYDROCHLORIDE
     Indication: Product used for unknown indication
     Route: 065
  29. BRENTUXIMAB VEDOTIN [Suspect]
     Active Substance: BRENTUXIMAB VEDOTIN
     Indication: Lymphadenopathy
     Route: 065
     Dates: start: 20241220
  30. BRENTUXIMAB VEDOTIN [Suspect]
     Active Substance: BRENTUXIMAB VEDOTIN
     Route: 065
     Dates: start: 20250103
  31. BRENTUXIMAB VEDOTIN [Suspect]
     Active Substance: BRENTUXIMAB VEDOTIN
     Route: 065
     Dates: start: 20250128
  32. VINBLASTINE [Suspect]
     Active Substance: VINBLASTINE
     Indication: Product used for unknown indication
     Route: 065
  33. AMOXICILLIN\CLAVULANATE POTASSIUM [Suspect]
     Active Substance: AMOXICILLIN\CLAVULANATE POTASSIUM
     Indication: Product used for unknown indication
     Route: 065
  34. BLEOMYCIN\DACARBAZINE\DOXORUBICIN\VINBLASTINE [Concomitant]
     Active Substance: BLEOMYCIN\DACARBAZINE\DOXORUBICIN\VINBLASTINE
     Indication: Product used for unknown indication
     Route: 065

REACTIONS (2)
  - Febrile neutropenia [Unknown]
  - Scabies [Unknown]
